FAERS Safety Report 17947757 (Version 1)
Quarter: 2020Q2

REPORT INFORMATION
  Report Type: Spontaneous
  Country: US (occurrence: US)
  Receive Date: 20200625
  Receipt Date: 20200625
  Transmission Date: 20200714
  Serious: No
  Sender: FDA-Public Use
  Company Number: None

PATIENT
  Age: 85 Year
  Sex: Female
  Weight: 102.06 kg

DRUGS (1)
  1. FLUTICASONE PROPIONATE NASAL SPRAY [Suspect]
     Active Substance: FLUTICASONE PROPIONATE
     Indication: SINUS DISORDER
     Route: 045
     Dates: start: 20200315, end: 20200615

REACTIONS (7)
  - Dyspnoea [None]
  - Dysphonia [None]
  - Weight decreased [None]
  - Nasal discomfort [None]
  - Decreased appetite [None]
  - Wheezing [None]
  - Increased viscosity of upper respiratory secretion [None]

NARRATIVE: CASE EVENT DATE: 20200601
